FAERS Safety Report 18786661 (Version 1)
Quarter: 2021Q1

REPORT INFORMATION
  Report Type: Spontaneous
  Country: US (occurrence: US)
  Receive Date: 20210125
  Receipt Date: 20210125
  Transmission Date: 20210419
  Serious: No
  Sender: FDA-Public Use
  Company Number: None

PATIENT
  Age: 43 Year
  Sex: Female

DRUGS (1)
  1. COSENTYX [Suspect]
     Active Substance: SECUKINUMAB
     Indication: PSORIASIS
     Dosage: INJECT 150MG (1 PEN) SUBCUTANEOUSLY  AT DAY 28 (DOSE 5) THEN EVERY 4WEEKS  AS DIRECTED
     Route: 058
     Dates: start: 202009

REACTIONS (3)
  - Nasal congestion [None]
  - Sinusitis [None]
  - Muscle strain [None]
